FAERS Safety Report 7151062-2 (Version None)
Quarter: 2010Q4

REPORT INFORMATION
  Report Type: 
  Country: None (occurrence: None)
  Receive Date: 20101210
  Receipt Date: 20101203
  Transmission Date: 20110411
  Serious: Yes (Hospitalization)
  Sender: FDA-Public Use
  Company Number: US-JNJFOC-20101202797

PATIENT
  Sex: Female
  Weight: 81.65 kg

DRUGS (5)
  1. SANDOZ FENTANYL TRANSDERMAL SYSTEM [Suspect]
     Indication: BACK PAIN
     Route: 062
  2. SANDOZ FENTANYL TRANSDERMAL SYSTEM [Suspect]
     Route: 062
  3. FENTANYL CITRATE [Suspect]
     Indication: BACK PAIN
     Route: 062
  4. PLAVIX [Suspect]
     Indication: CORONARY ARTERIAL STENT INSERTION
     Route: 048
  5. ASPIRIN [Suspect]
     Indication: CORONARY ARTERIAL STENT INSERTION
     Route: 048

REACTIONS (15)
  - APPLICATION SITE VESICLES [None]
  - CYSTOCELE [None]
  - DEMENTIA [None]
  - DEPENDENCE [None]
  - DIABETES MELLITUS [None]
  - DIARRHOEA [None]
  - HAEMATEMESIS [None]
  - HAEMATOCHEZIA [None]
  - HAEMORRHAGE [None]
  - MEMORY IMPAIRMENT [None]
  - NAUSEA [None]
  - RECTOCELE [None]
  - RENAL FAILURE CHRONIC [None]
  - ULCER HAEMORRHAGE [None]
  - WEIGHT DECREASED [None]
